FAERS Safety Report 9738744 (Version 2)
Quarter: 2013Q4

REPORT INFORMATION
  Report Type: Spontaneous
  Country: IT (occurrence: IT)
  Receive Date: 20131209
  Receipt Date: 20131220
  Transmission Date: 20140711
  Serious: Yes (Other)
  Sender: FDA-Public Use
  Company Number: IT-ACCORD-020654

PATIENT
  Age: 70 Year
  Sex: Female
  Weight: 85 kg

DRUGS (5)
  1. 5-FLUOROURACIL [Concomitant]
     Indication: CHEMOTHERAPY
     Dosage: 1-(?-D-5^-DEOSSIRIBOFURANOSIL)-5-FLUOROURACIL
     Dates: start: 20130514, end: 20130809
  2. AVASTIN [Concomitant]
     Dates: start: 20130514, end: 20130709
  3. LEVOFOLINIC ACID [Concomitant]
     Indication: CHEMOTHERAPY
     Dates: start: 20130514, end: 20130809
  4. OXALIPLATIN [Suspect]
     Indication: RECTAL ADENOCARCINOMA
     Route: 042
     Dates: start: 20130709, end: 20130809
  5. IRINOTECAN HYDROCHLORIDE [Suspect]
     Indication: RECTAL ADENOCARCINOMA
     Route: 042
     Dates: start: 20130514, end: 20130625

REACTIONS (5)
  - Hepatotoxicity [Unknown]
  - Back pain [Recovered/Resolved]
  - Hyperhidrosis [Recovered/Resolved]
  - Haematuria [Recovered/Resolved]
  - Tremor [Recovered/Resolved]
